FAERS Safety Report 21387428 (Version 1)
Quarter: 2022Q3

REPORT INFORMATION
  Report Type: Spontaneous
  Country: GB (occurrence: GB)
  Receive Date: 20220928
  Receipt Date: 20220928
  Transmission Date: 20221026
  Serious: Yes (Life-Threatening, Hospitalization)
  Sender: FDA-Public Use
  Company Number: GB-MYLANLABS-2022M1096832

PATIENT
  Sex: Male

DRUGS (13)
  1. BACLOFEN [Interacting]
     Active Substance: BACLOFEN
     Indication: Complex regional pain syndrome
     Dosage: UNK, THE RATE OF INFUSION- 860 MICROG/24H
     Route: 037
  2. GABAPENTIN [Interacting]
     Active Substance: GABAPENTIN
     Indication: Complex regional pain syndrome
     Dosage: 300 MILLIGRAM, TID
     Route: 065
  3. AMITRIPTYLINE [Concomitant]
     Active Substance: AMITRIPTYLINE
     Indication: Complex regional pain syndrome
     Dosage: 25 MILLIGRAM
     Route: 065
  4. TRAMADOL [Concomitant]
     Active Substance: TRAMADOL
     Indication: Complex regional pain syndrome
     Dosage: UNK, TID (50-100MG- THREE TIMES A DAY -AS OCCASION REQUIRES)
     Route: 065
  5. MIRTAZAPINE [Concomitant]
     Active Substance: MIRTAZAPINE
     Indication: Complex regional pain syndrome
     Dosage: 45 MILLIGRAM
     Route: 065
  6. QUETIAPINE [Concomitant]
     Active Substance: QUETIAPINE
     Indication: Complex regional pain syndrome
     Dosage: 50 MILLIGRAM, QD
     Route: 065
  7. QUETIAPINE [Concomitant]
     Active Substance: QUETIAPINE
     Dosage: 100 MILLIGRAM
     Route: 065
  8. ZOPICLONE [Concomitant]
     Active Substance: ZOPICLONE
     Indication: Complex regional pain syndrome
     Dosage: 7.5 MILLIGRAM, QD
     Route: 065
  9. LIDOCAINE [Concomitant]
     Active Substance: LIDOCAINE
     Indication: Complex regional pain syndrome
     Dosage: UNK, TT OD
     Route: 062
  10. NAPROXEN [Concomitant]
     Active Substance: NAPROXEN
     Indication: Complex regional pain syndrome
     Dosage: 500 MILLIGRAM, BID
     Route: 065
  11. MEFENAMIC ACID [Concomitant]
     Active Substance: MEFENAMIC ACID
     Indication: Complex regional pain syndrome
     Dosage: 500 MILLIGRAM, TID, THREE TIMES A DAY- AS REQUIRED
     Route: 065
  12. PANTOPRAZOLE [Concomitant]
     Active Substance: PANTOPRAZOLE
     Indication: Drug therapy
     Dosage: 40 MILLIGRAM, QD
     Route: 065
  13. NICORETTE [Concomitant]
     Active Substance: NICOTINE
     Indication: Product used for unknown indication
     Dosage: 25 MILLIGRAM, QD, EVERY MORNING
     Route: 065

REACTIONS (3)
  - Brain stem syndrome [Recovered/Resolved]
  - Potentiating drug interaction [Recovered/Resolved]
  - Overdose [Recovered/Resolved]
